FAERS Safety Report 11254898 (Version 1)
Quarter: 2015Q3

REPORT INFORMATION
  Report Type: Spontaneous
  Country: FR (occurrence: FR)
  Receive Date: 20150709
  Receipt Date: 20150709
  Transmission Date: 20151125
  Serious: Yes (Hospitalization)
  Sender: FDA-Public Use
  Company Number: FR-ASTRAZENECA-2015SE65027

PATIENT
  Age: 29746 Day
  Sex: Female

DRUGS (10)
  1. POTASSIUM [Suspect]
     Active Substance: POTASSIUM
     Route: 048
     Dates: start: 20150617, end: 20150618
  2. AMLODIPINE [Suspect]
     Active Substance: AMLODIPINE BESYLATE
     Route: 048
     Dates: start: 20150618, end: 20150618
  3. AMITRIPTYLINE [Suspect]
     Active Substance: AMITRIPTYLINE
     Route: 048
     Dates: start: 20150618, end: 20150618
  4. OXAZEPAM. [Suspect]
     Active Substance: OXAZEPAM
     Route: 048
     Dates: start: 20150617, end: 20150618
  5. LORMETAZEPAM [Suspect]
     Active Substance: LORMETAZEPAM
     Route: 048
     Dates: start: 20150617, end: 20150617
  6. SYMBICORT [Suspect]
     Active Substance: BUDESONIDE\FORMOTEROL FUMARATE DIHYDRATE
     Dosage: 80/4.5 UG PER DOSE, TWICE PER DAY
     Route: 055
     Dates: start: 20150617, end: 20150618
  7. BACLOFENE [Suspect]
     Active Substance: BACLOFEN
     Route: 048
     Dates: start: 20150617, end: 20150618
  8. ESCITALOPRAM [Suspect]
     Active Substance: ESCITALOPRAM OXALATE
     Route: 048
     Dates: start: 20150618, end: 20150618
  9. NEBIVOLOL. [Concomitant]
     Active Substance: NEBIVOLOL
  10. BISOPROLOL [Suspect]
     Active Substance: BISOPROLOL
     Route: 048
     Dates: start: 20150617, end: 20150618

REACTIONS (4)
  - Fall [Unknown]
  - Drug prescribing error [Unknown]
  - Somnolence [Unknown]
  - Accidental exposure to product [Unknown]

NARRATIVE: CASE EVENT DATE: 20150617
